FAERS Safety Report 4986119-5 (Version None)
Quarter: 2006Q1

REPORT INFORMATION
  Report Type: 
  Country: None (occurrence: None)
  Receive Date: 20060309
  Receipt Date: 20050808
  Transmission Date: 20060701
  Serious: Yes (Other)
  Sender: FDA-Public Use
  Company Number: 414266

PATIENT

DRUGS (4)
  1. ACCUTANE [Suspect]
     Indication: ACNE
  2. CLARAVIS [Suspect]
     Indication: ACNE
     Dates: start: 20030716, end: 20031117
  3. ORAL CONTRACEPTIVE PILL (ORAL CONTRACEPTIVES NOS) [Concomitant]
  4. CONTRACEPTIVE NOS (CONTRACEPTIVE NOS) [Concomitant]

REACTIONS (1)
  - ABORTION SPONTANEOUS [None]
